FAERS Safety Report 9234043 (Version 2)
Quarter: 2013Q2

REPORT INFORMATION
  Report Type: Spontaneous
  Country: US (occurrence: None)
  Receive Date: 20121031
  Receipt Date: 20130107
  Transmission Date: 20140414
  Serious: Yes (Other)
  Sender: FDA-Public Use
  Company Number: PHEH2012US016422

PATIENT
  Age: 38 Year
  Sex: Female
  Weight: 47.6 kg

DRUGS (3)
  1. GILENYA [Suspect]
     Indication: MULTIPLE SCLEROSIS
     Route: 048
     Dates: start: 20120814
  2. NUVIGIL (ARMODAFINIL) [Concomitant]
  3. ORAL CONTRACEPTIVE NOS (ORAL CONTRACEPTIVE NOS) [Concomitant]

REACTIONS (5)
  - Vomiting [None]
  - Malaise [None]
  - Fatigue [None]
  - Decreased appetite [None]
  - Abdominal discomfort [None]
